FAERS Safety Report 9126806 (Version 1)
Quarter: 2013Q1

REPORT INFORMATION
  Report Type: Spontaneous
  Country: US (occurrence: US)
  Receive Date: 20130228
  Receipt Date: 20130228
  Transmission Date: 20140127
  Serious: No
  Sender: FDA-Public Use
  Company Number: US-TARO-2012P1010730

PATIENT
  Age: 26 Year
  Sex: Female
  Weight: 100.7 kg

DRUGS (1)
  1. LAMOTRIGINE [Suspect]
     Route: 048
     Dates: start: 2007

REACTIONS (2)
  - Coeliac disease [Not Recovered/Not Resolved]
  - Polycystic ovaries [Not Recovered/Not Resolved]
